FAERS Safety Report 12194424 (Version 1)
Quarter: 2016Q1

REPORT INFORMATION
  Report Type: Spontaneous
  Country: US (occurrence: None)
  Receive Date: 20160318
  Receipt Date: 20160318
  Transmission Date: 20160526
  Serious: Yes (Other)
  Sender: FDA-Public Use
  Company Number: None

PATIENT
  Age: 60 Year
  Sex: Female
  Weight: 54.43 kg

DRUGS (3)
  1. CLONAZEPAM 0.5 ACTVIS [Suspect]
     Active Substance: CLONAZEPAM
     Indication: AUTONOMIC NERVOUS SYSTEM IMBALANCE
     Dosage: 45  ONE DAIL, 4TH NEE??PERMANENTLY
     Route: 048
  2. CLONAZEPAM 0.5 ACTVIS [Suspect]
     Active Substance: CLONAZEPAM
     Indication: PANIC REACTION
     Dosage: 45  ONE DAIL, 4TH NEE??PERMANENTLY
     Route: 048
  3. CLONAZEPAM 0.5 ACTVIS [Suspect]
     Active Substance: CLONAZEPAM
     Indication: ANXIETY
     Dosage: 45  ONE DAIL, 4TH NEE??PERMANENTLY
     Route: 048

REACTIONS (5)
  - Autonomic nervous system imbalance [None]
  - Panic reaction [None]
  - Disease recurrence [None]
  - Product substitution issue [None]
  - Anxiety [None]

NARRATIVE: CASE EVENT DATE: 20160316
